FAERS Safety Report 8240237-7 (Version None)
Quarter: 2012Q1

REPORT INFORMATION
  Report Type: 
  Country: None (occurrence: None)
  Receive Date: 20120328
  Receipt Date: 20120319
  Transmission Date: 20120608
  Serious: Yes (Hospitalization, Other)
  Sender: FDA-Public Use
  Company Number: ES-ELI_LILLY_AND_COMPANY-ES201203005552

PATIENT
  Sex: Female
  Weight: 83 kg

DRUGS (10)
  1. NOLOTIL [Concomitant]
     Indication: ANALGESIC THERAPY
     Dosage: 1 DF, QD
     Route: 048
  2. ATENOLOL [Concomitant]
     Indication: HYPERTENSION
     Dosage: 50 MG, QD
     Route: 048
  3. FORTEO [Suspect]
     Indication: OSTEOPOROSIS
     Dosage: 20 UG, QD
     Route: 058
     Dates: start: 20111214
  4. OMEPRAZOLE [Concomitant]
     Indication: GASTRIC DISORDER
     Dosage: 1 DF, QD
     Route: 048
  5. NAPROXENO                          /00256201/ [Concomitant]
     Dosage: 1 DF, QD
     Route: 048
  6. AMILORIDE HCL AND HYDROCHLOROTHIAZIDE [Concomitant]
     Indication: HYPERTENSION
     Dosage: 1 DF, QD
     Route: 048
  7. AMITRIPTYLINE HCL [Concomitant]
     Dosage: 1 DF, QD
     Route: 048
  8. NATECAL D [Concomitant]
     Indication: OSTEOPOROSIS
     Dosage: 1 DF, QD
     Route: 048
  9. SIMVASTATIN [Concomitant]
     Indication: HYPERCHOLESTEROLAEMIA
     Dosage: 1 DF, QD
     Route: 048
  10. SERTRALINA [Concomitant]
     Dosage: 1 DF, QD
     Route: 048

REACTIONS (1)
  - PELVIC FRACTURE [None]
